FAERS Safety Report 5823377-9 (Version None)
Quarter: 2008Q3

REPORT INFORMATION
  Report Type: 
  Country: None (occurrence: None)
  Receive Date: 20080725
  Receipt Date: 20071203
  Transmission Date: 20090109
  Serious: No
  Sender: FDA-Public Use
  Company Number: A0696979A

PATIENT

DRUGS (1)
  1. HYCAMTIN [Suspect]
     Dosage: 3MGM2 WEEKLY
     Route: 042

REACTIONS (1)
  - PLATELET COUNT DECREASED [None]
